FAERS Safety Report 11455450 (Version 3)
Quarter: 2015Q4

REPORT INFORMATION
  Report Type: Spontaneous
  Country: US (occurrence: US)
  Receive Date: 20150903
  Receipt Date: 20151007
  Transmission Date: 20160304
  Serious: Yes (Hospitalization, Other)
  Sender: FDA-Public Use
  Company Number: US-AMAG PHARMACEUTICALS, INC.-AMAG201500110

PATIENT

DRUGS (2)
  1. MAKENA [Suspect]
     Active Substance: HYDROXYPROGESTERONE CAPROATE
     Indication: PREMATURE DELIVERY
     Dosage: 250 MG, WEEKLY
     Route: 030
     Dates: start: 20141202, end: 20150210
  2. PRENATAL VITAMINS [Concomitant]
     Active Substance: VITAMINS

REACTIONS (5)
  - Preterm premature rupture of membranes [Recovered/Resolved]
  - Premature labour [Recovered/Resolved]
  - Premature delivery [Recovered/Resolved]
  - Pelvic discomfort [Unknown]
  - Pain [Unknown]

NARRATIVE: CASE EVENT DATE: 20150215
